FAERS Safety Report 12583251 (Version 2)
Quarter: 2016Q4

REPORT INFORMATION
  Report Type: Report from Study
  Country: US (occurrence: US)
  Receive Date: 20160722
  Receipt Date: 20161004
  Transmission Date: 20170207
  Serious: Yes (Other)
  Sender: FDA-Public Use
  Company Number: US-BAYER-2016-133453

PATIENT
  Age: 73 Year
  Sex: Male

DRUGS (1)
  1. STIVARGA [Suspect]
     Active Substance: REGORAFENIB
     Indication: COLON CANCER
     Dosage: 160 MG, QD, 21 ON 7 OFF
     Route: 048
     Dates: start: 20160527, end: 2016

REACTIONS (8)
  - Pain in extremity [Unknown]
  - Pyrexia [Unknown]
  - Toxicity to various agents [Recovered/Resolved]
  - Renal impairment [None]
  - Hypertension [None]
  - Proteinuria [None]
  - Protein urine present [Unknown]
  - Palmar-plantar erythrodysaesthesia syndrome [Unknown]
